FAERS Safety Report 22343623 (Version 1)
Quarter: 2023Q2

REPORT INFORMATION
  Report Type: Spontaneous
  Country: US (occurrence: None)
  Receive Date: 20230518
  Receipt Date: 20230518
  Transmission Date: 20230721
  Serious: Yes (unspecified)
  Sender: FDA-Public Use
  Company Number: None

PATIENT
  Age: 41 Year
  Sex: Male
  Weight: 88.45 kg

DRUGS (18)
  1. DAPTOMYCIN [Suspect]
     Active Substance: DAPTOMYCIN
     Indication: Osteomyelitis
     Dosage: FREQUENCY : DAILY;?
     Route: 042
     Dates: start: 20230502, end: 20230510
  2. LACTOBACILLUS ACIDOPHILUS [Concomitant]
     Active Substance: LACTOBACILLUS ACIDOPHILUS
  3. LANTUS [Concomitant]
     Active Substance: INSULIN GLARGINE
  4. FAMOTIDINE [Concomitant]
     Active Substance: FAMOTIDINE
  5. CALCIUM CARBONATE [Concomitant]
     Active Substance: CALCIUM CARBONATE
  6. multivitamin [Concomitant]
  7. DIAZEPAM [Concomitant]
     Active Substance: DIAZEPAM
  8. ENOXAPARIN [Concomitant]
     Active Substance: ENOXAPARIN
  9. LOSARTAN [Concomitant]
     Active Substance: LOSARTAN
  10. HUMULIN R [Concomitant]
     Active Substance: INSULIN HUMAN
  11. DOCUSATE [Concomitant]
     Active Substance: DOCUSATE
  12. TRAMADOL [Concomitant]
     Active Substance: TRAMADOL
  13. OXYCODONE [Concomitant]
  14. ONDANSETRON [Concomitant]
     Active Substance: ONDANSETRON
  15. MELATONIN [Concomitant]
     Active Substance: MELATONIN
  16. BISACODYL [Concomitant]
  17. FENTANYL [Concomitant]
     Active Substance: FENTANYL
  18. ACETAMINOPHEN [Concomitant]
     Active Substance: ACETAMINOPHEN

REACTIONS (3)
  - Blood creatine phosphokinase increased [None]
  - Muscular weakness [None]
  - Feeling abnormal [None]

NARRATIVE: CASE EVENT DATE: 20230510
